FAERS Safety Report 7759846-4 (Version None)
Quarter: 2011Q3

REPORT INFORMATION
  Report Type: 
  Country: None (occurrence: None)
  Receive Date: 20110919
  Receipt Date: 20110908
  Transmission Date: 20111222
  Serious: Yes (Hospitalization)
  Sender: FDA-Public Use
  Company Number: CA-JNJFOC-20110904294

PATIENT
  Sex: Male
  Weight: 88 kg

DRUGS (3)
  1. IMURAN [Concomitant]
  2. MESALAMINE [Concomitant]
  3. REMICADE [Suspect]
     Indication: CROHN'S DISEASE
     Route: 042
     Dates: start: 20080828

REACTIONS (2)
  - MACULAR DEGENERATION [None]
  - CHRONIC OBSTRUCTIVE PULMONARY DISEASE [None]
